FAERS Safety Report 5025851-4 (Version None)
Quarter: 2006Q2

REPORT INFORMATION
  Report Type: 
  Country: None (occurrence: None)
  Receive Date: 20060614
  Receipt Date: 20060608
  Transmission Date: 20061013
  Serious: Yes (Other)
  Sender: FDA-Public Use
  Company Number: FR-AVENTIS-200612074FR

PATIENT
  Age: 86 Year
  Sex: Female

DRUGS (3)
  1. AMARYL [Suspect]
     Indication: DRUG USE FOR UNKNOWN INDICATION
     Dosage: DOSE UNIT: UNITS
     Route: 048
     Dates: end: 20060517
  2. GLUCOPHAGE [Suspect]
     Indication: DRUG USE FOR UNKNOWN INDICATION
     Dosage: DOSE UNIT: UNITS
     Route: 048
     Dates: end: 20060517
  3. ALDALIX [Concomitant]
     Indication: DRUG USE FOR UNKNOWN INDICATION
     Route: 048
     Dates: end: 20060518

REACTIONS (5)
  - COMA [None]
  - HYPOGLYCAEMIA [None]
  - LUNG NEOPLASM [None]
  - MALAISE [None]
  - MYALGIA [None]
